FAERS Safety Report 4463734-9 (Version None)
Quarter: 2004Q3

REPORT INFORMATION
  Report Type: 
  Country: None (occurrence: None)
  Receive Date: 20040929
  Receipt Date: 20040909
  Transmission Date: 20050211
  Serious: Yes (Other)
  Sender: FDA-Public Use
  Company Number: JP_040804224

PATIENT
  Age: 81 Year
  Sex: Female

DRUGS (10)
  1. EVISTA [Suspect]
     Indication: OSTEOPOROSIS POSTMENOPAUSAL
     Dosage: 60 MG/ 1 DAY
     Dates: start: 20040527, end: 20040101
  2. PREDNISOLONE [Concomitant]
  3. BISOPROLOL FUMARATE [Concomitant]
  4. ORCL (ACTARIT) [Concomitant]
  5. METHYCOBAL (MECOBALAMIN) [Concomitant]
  6. ACECOL (TEMOCAPRIL HYDROCHLORIDE) [Concomitant]
  7. NIZATIDINE [Concomitant]
  8. ETODOLAC [Concomitant]
  9. NORVASC [Concomitant]
  10. GLAKAY (MENATETRENONE) [Concomitant]

REACTIONS (1)
  - BLOOD PRESSURE FLUCTUATION [None]
